FAERS Safety Report 9352239 (Version 1)
Quarter: 2013Q2

REPORT INFORMATION
  Report Type: Spontaneous
  Country: US (occurrence: US)
  Receive Date: 20130617
  Receipt Date: 20130617
  Transmission Date: 20140414
  Serious: No
  Sender: FDA-Public Use
  Company Number: US-ASTRAZENECA-2013SE41589

PATIENT
  Age: 64 Year
  Sex: Male
  Weight: 65.8 kg

DRUGS (6)
  1. SYMBICORT [Suspect]
     Indication: INFLAMMATION
     Dosage: 160/4.5 BID
     Route: 055
     Dates: start: 20130505, end: 20130601
  2. SYMBICORT [Suspect]
     Indication: LUNG NEOPLASM MALIGNANT
     Dosage: 160/4.5 BID
     Route: 055
     Dates: start: 20130505, end: 20130601
  3. SYMBICORT [Suspect]
     Indication: COUGH
     Dosage: 160/4.5 BID
     Route: 055
     Dates: start: 20130505, end: 20130601
  4. SYMBICORT [Suspect]
     Indication: INFLAMMATION
     Dosage: 160/4.5 QD
     Route: 055
     Dates: start: 20130602, end: 20130604
  5. SYMBICORT [Suspect]
     Indication: LUNG NEOPLASM MALIGNANT
     Dosage: 160/4.5 QD
     Route: 055
     Dates: start: 20130602, end: 20130604
  6. SYMBICORT [Suspect]
     Indication: COUGH
     Dosage: 160/4.5 QD
     Route: 055
     Dates: start: 20130602, end: 20130604

REACTIONS (2)
  - Wheezing [Not Recovered/Not Resolved]
  - Off label use [Unknown]
